FAERS Safety Report 9912153 (Version 1)
Quarter: 2014Q1

REPORT INFORMATION
  Report Type: Other
  Country: US (occurrence: US)
  Receive Date: 20140220
  Receipt Date: 20140220
  Transmission Date: 20141002
  Serious: Yes (Hospitalization)
  Sender: FDA-Public Use
  Company Number: US-BRISTOL-MYERS SQUIBB COMPANY-20171088

PATIENT
  Age: 49 Year
  Sex: Male

DRUGS (13)
  1. METFORMIN HCL [Suspect]
     Route: 048
  2. FLUOROURACIL [Suspect]
     Indication: CHEMOTHERAPY
  3. OXALIPLATIN [Suspect]
     Indication: CHEMOTHERAPY
  4. LEUCOVORIN [Suspect]
     Indication: CHEMOTHERAPY
  5. VANCOMYCIN [Suspect]
     Indication: ENTEROCOCCAL INFECTION
  6. SUCRALFATE [Concomitant]
     Route: 048
  7. MIRTAZAPINE [Concomitant]
     Route: 048
  8. GLIMEPIRIDE [Concomitant]
     Route: 048
  9. ZOLPIDEM [Concomitant]
     Route: 048
  10. SIMETHICONE [Concomitant]
     Dosage: AS NEEDED 4 IN 1 D
  11. PROCHLORPERAZINE [Concomitant]
     Dosage: 4 IN 1 D
     Route: 048
  12. ONDANSETRON [Concomitant]
     Dosage: EVERY 6 HOURS
     Route: 048
  13. ACETAMINOPHEN [Concomitant]
     Dosage: EVERY 6 HOURS
     Route: 048

REACTIONS (4)
  - Bacterial infection [Recovered/Resolved]
  - Escherichia bacteraemia [Recovered/Resolved]
  - Streptococcal bacteraemia [Recovered/Resolved]
  - Enterococcal infection [Recovered/Resolved]
